FAERS Safety Report 14003221 (Version 2)
Quarter: 2017Q4

REPORT INFORMATION
  Report Type: Report from Study
  Country: AR (occurrence: AR)
  Receive Date: 20170922
  Receipt Date: 20171009
  Transmission Date: 20180321
  Serious: Yes (Hospitalization, Other)
  Sender: FDA-Public Use
  Company Number: PHHY2017AR138212

PATIENT
  Sex: Female

DRUGS (1)
  1. AFINITOR [Suspect]
     Active Substance: EVEROLIMUS
     Indication: BREAST CANCER
     Dosage: 10 MG, QD
     Route: 065
     Dates: start: 20150301, end: 201702

REACTIONS (7)
  - General physical health deterioration [Unknown]
  - Breast cancer [Unknown]
  - Gait inability [Not Recovered/Not Resolved]
  - Asthenia [Unknown]
  - Spinal pain [Not Recovered/Not Resolved]
  - Bone lesion [Unknown]
  - Malignant neoplasm progression [Unknown]
